FAERS Safety Report 12695509 (Version 2)
Quarter: 2017Q4

REPORT INFORMATION
  Report Type: Spontaneous
  Country: US (occurrence: US)
  Receive Date: 20160829
  Receipt Date: 20171218
  Transmission Date: 20180320
  Serious: Yes (Hospitalization, Other)
  Sender: FDA-Public Use
  Company Number: US-PFIZER INC-2011289367

PATIENT
  Age: 64 Year
  Sex: Male

DRUGS (3)
  1. ENBREL [Suspect]
     Active Substance: ETANERCEPT
     Indication: PSORIASIS
     Dosage: UNK UNK, 2 TIMES/WK
     Route: 065
  2. ALBUTEROL. [Concomitant]
     Active Substance: ALBUTEROL
     Indication: ASTHMA
     Dosage: UNK
  3. ENBREL [Suspect]
     Active Substance: ETANERCEPT
     Indication: PSORIATIC ARTHROPATHY
     Dosage: 50 MG, QWK
     Route: 065
     Dates: start: 2000

REACTIONS (15)
  - Pneumonia bacterial [Unknown]
  - Hand fracture [Unknown]
  - Memory impairment [Unknown]
  - Cardiac assistance device user [Unknown]
  - Nasopharyngitis [Unknown]
  - Transient ischaemic attack [Unknown]
  - Vascular dementia [Unknown]
  - Laboratory test abnormal [Unknown]
  - Chronic kidney disease [Unknown]
  - Headache [Unknown]
  - Psoriasis [Unknown]
  - Left ventricular failure [Unknown]
  - Fall [Unknown]
  - Limb injury [Unknown]
  - Intentional product misuse [Unknown]

NARRATIVE: CASE EVENT DATE: 201110
